FAERS Safety Report 25445651 (Version 3)
Quarter: 2025Q3

REPORT INFORMATION
  Report Type: Spontaneous
  Country: JP (occurrence: JP)
  Receive Date: 20250617
  Receipt Date: 20250829
  Transmission Date: 20251020
  Serious: Yes (Hospitalization)
  Sender: ASTELLAS
  Company Number: JP-ASTELLAS-2025-AER-032385

PATIENT
  Age: 87 Year
  Sex: Male

DRUGS (6)
  1. PADCEV [Suspect]
     Active Substance: ENFORTUMAB VEDOTIN-EJFV
     Indication: Transitional cell carcinoma
     Route: 042
     Dates: start: 20250513, end: 20250513
  2. PADCEV [Suspect]
     Active Substance: ENFORTUMAB VEDOTIN-EJFV
     Route: 042
     Dates: start: 20250708, end: 20250708
  3. PADCEV [Suspect]
     Active Substance: ENFORTUMAB VEDOTIN-EJFV
     Route: 042
     Dates: start: 20250805, end: 20250805
  4. PEMBROLIZUMAB [Concomitant]
     Active Substance: PEMBROLIZUMAB
     Indication: Transitional cell carcinoma
     Route: 065
  5. PEMBROLIZUMAB [Concomitant]
     Active Substance: PEMBROLIZUMAB
     Route: 065
  6. PEMBROLIZUMAB [Concomitant]
     Active Substance: PEMBROLIZUMAB
     Route: 065

REACTIONS (1)
  - Femoral neck fracture [Recovered/Resolved]

NARRATIVE: CASE EVENT DATE: 20250514
